FAERS Safety Report 15008860 (Version 1)
Quarter: 2018Q2

REPORT INFORMATION
  Report Type: Report from Study
  Country: None (occurrence: HU)
  Receive Date: 20180613
  Receipt Date: 20180613
  Transmission Date: 20180711
  Serious: Yes (Other)
  Sender: FDA-Public Use
  Company Number: HU-ABBVIE-18K-076-2384609-00

PATIENT
  Age: 11 Year
  Sex: Male

DRUGS (2)
  1. HUMIRA [Suspect]
     Active Substance: ADALIMUMAB
     Indication: RHEUMATIC DISORDER
  2. HUMIRA [Suspect]
     Active Substance: ADALIMUMAB
     Indication: UVEITIS
     Route: 058
     Dates: start: 20170409, end: 2017

REACTIONS (5)
  - Vision blurred [Unknown]
  - Injection site paraesthesia [Unknown]
  - Injection site pain [Unknown]
  - Eye disorder [Unknown]
  - Headache [Unknown]

NARRATIVE: CASE EVENT DATE: 201704
